FAERS Safety Report 10153351 (Version 1)
Quarter: 2014Q2

REPORT INFORMATION
  Report Type: Spontaneous
  Country: CZ (occurrence: CZ)
  Receive Date: 20140505
  Receipt Date: 20140505
  Transmission Date: 20141212
  Serious: Yes (Other)
  Sender: FDA-Public Use
  Company Number: CZ-ROXANE LABORATORIES, INC.-2014-RO-00685RO

PATIENT
  Sex: Female

DRUGS (14)
  1. CYCLOPHOSPHAMIDE TABLETS USP [Suspect]
     Indication: BREAST CANCER
     Route: 065
  2. METHOTREXATE [Suspect]
     Indication: BREAST CANCER
     Route: 065
  3. LETROZOLE [Suspect]
     Indication: BREAST CANCER METASTATIC
     Route: 065
     Dates: start: 200404
  4. EXEMESTANE [Suspect]
     Indication: BREAST CANCER METASTATIC
     Route: 065
  5. FLUOROURACIL [Suspect]
     Indication: BREAST CANCER
     Route: 065
  6. TAMOXIFEN [Suspect]
     Indication: BREAST CANCER
     Route: 065
  7. BISPHOSPHONATE [Suspect]
     Indication: BREAST CANCER METASTATIC
     Route: 048
     Dates: start: 200404
  8. FASLODEX [Suspect]
     Indication: BREAST CANCER METASTATIC
     Route: 065
  9. CAPECITABINE [Suspect]
     Indication: BREAST CANCER METASTATIC
     Route: 065
     Dates: start: 200607, end: 200805
  10. ZOLEDRONATE [Suspect]
     Indication: BREAST CANCER METASTATIC
     Route: 042
     Dates: start: 200607, end: 200805
  11. NAVELBINE [Suspect]
     Indication: BREAST CANCER METASTATIC
     Route: 048
     Dates: start: 200805
  12. PACLITAXEL [Suspect]
     Indication: BREAST CANCER METASTATIC
     Route: 065
     Dates: start: 201004
  13. ERIBULIN MESYLATE [Suspect]
     Indication: BREAST CANCER METASTATIC
     Route: 065
     Dates: start: 201011, end: 201109
  14. EVEROLIMUS [Suspect]
     Indication: BREAST CANCER METASTATIC
     Route: 065

REACTIONS (7)
  - Metastases to bone [Unknown]
  - Metastases to liver [Unknown]
  - Disease progression [Unknown]
  - Aphthous stomatitis [Unknown]
  - Gastric disorder [Unknown]
  - Mucosal haemorrhage [Unknown]
  - Anaemia [Unknown]
